FAERS Safety Report 18650936 (Version 2)
Quarter: 2021Q1

REPORT INFORMATION
  Report Type: Report from Study
  Country: CA (occurrence: CA)
  Receive Date: 20201223
  Receipt Date: 20210113
  Transmission Date: 20210419
  Serious: Yes (Death)
  Sender: FDA-Public Use
  Company Number: CA-JNJFOC-20201232461

PATIENT
  Age: 90 Year
  Sex: Male

DRUGS (1)
  1. STELARA [Suspect]
     Active Substance: USTEKINUMAB
     Indication: PSORIASIS
     Route: 058
     Dates: start: 20170330, end: 20201015

REACTIONS (2)
  - Palliative care [Unknown]
  - Death [Fatal]

NARRATIVE: CASE EVENT DATE: 2020
